FAERS Safety Report 21668185 (Version 1)
Quarter: 2022Q4

REPORT INFORMATION
  Report Type: Spontaneous
  Country: NL (occurrence: NL)
  Receive Date: 20221201
  Receipt Date: 20221201
  Transmission Date: 20230112
  Serious: Yes (Other)
  Sender: FDA-Public Use
  Company Number: None

PATIENT
  Sex: Male
  Weight: 96 kg

DRUGS (4)
  1. CARBIDOPA\LEVODOPA [Interacting]
     Active Substance: CARBIDOPA\LEVODOPA
     Indication: Parkinson^s disease
     Dosage: 100/25 MG (MILLIGRAM), STRENGTH : 100/25MG / BRAND NAME NOT SPECIFIED, THERAPY START DATE : ASKU , T
     Route: 065
  2. METOPROLOL TARTRATE [Interacting]
     Active Substance: METOPROLOL TARTRATE
     Indication: Arrhythmia
     Dosage: 200 MILLIGRAM DAILY; 1 PIECE PER DAY,  METOPROLOL TABLET MGA 200MG, THERAPY END DATE : ASKU
     Dates: start: 20220701
  3. PRAMIPEXOLE [Concomitant]
     Active Substance: PRAMIPEXOLE
     Indication: Product used for unknown indication
     Dosage: RETARD 0.26 MG (3 UNITS/DAY), PRAMIPEXOL TABLET MGA 3,75MG (2,62MG BASE) / BRAND NAME NOT SPECIFIED,
  4. METHOTREXATE [Concomitant]
     Active Substance: METHOTREXATE
     Indication: Product used for unknown indication
     Dosage: INJECTION FLUID , 2,5 MG/ML (MILLIGRAM PER MILLILITER), INJVLST 2.5MG/ML / BRAND NAME NOT SPECIFIED,

REACTIONS (4)
  - Erectile dysfunction [Recovered/Resolved]
  - Drug interaction [Unknown]
  - Drug titration error [Unknown]
  - Gait inability [Unknown]
